FAERS Safety Report 18173415 (Version 1)
Quarter: 2020Q3

REPORT INFORMATION
  Report Type: Spontaneous
  Country: US (occurrence: US)
  Receive Date: 20200820
  Receipt Date: 20200820
  Transmission Date: 20201103
  Serious: No
  Sender: FDA-Public Use
  Company Number: US-AMGEN-USASP2020131120

PATIENT
  Sex: Female

DRUGS (1)
  1. PROLIA [Suspect]
     Active Substance: DENOSUMAB
     Indication: ARTHRITIS
     Dosage: UNK, Q6MO
     Route: 065

REACTIONS (5)
  - Off label use [Unknown]
  - Feeling of body temperature change [Unknown]
  - Weight decreased [Unknown]
  - Alopecia [Unknown]
  - Skin disorder [Unknown]
